FAERS Safety Report 9336653 (Version 2)
Quarter: 2013Q2

REPORT INFORMATION
  Report Type: Report from Study
  Country: US (occurrence: US)
  Receive Date: 20130607
  Receipt Date: 20130617
  Transmission Date: 20140414
  Serious: Yes (Other)
  Sender: FDA-Public Use
  Company Number: PHHY2013US048812

PATIENT
  Age: 48 Year
  Sex: Female
  Weight: 48.9 kg

DRUGS (3)
  1. GILENYA [Suspect]
     Indication: MULTIPLE SCLEROSIS
     Dosage: 0.5 MG, QD
     Route: 048
     Dates: start: 20130115
  2. GILENYA [Suspect]
     Dosage: 0.5 MG, QOD
     Route: 048
  3. IBUPROFEN [Concomitant]
     Indication: PAIN
     Route: 048
     Dates: start: 201211

REACTIONS (12)
  - Multiple sclerosis relapse [Not Recovered/Not Resolved]
  - Blindness [Unknown]
  - Dysstasia [Not Recovered/Not Resolved]
  - Visual impairment [Recovered/Resolved]
  - Headache [Unknown]
  - Vision blurred [Unknown]
  - Pain in extremity [Unknown]
  - Muscle spasms [Unknown]
  - Dysarthria [Unknown]
  - Cerebellar syndrome [Unknown]
  - Fatigue [Recovering/Resolving]
  - Inappropriate schedule of drug administration [Unknown]
